FAERS Safety Report 12191550 (Version 1)
Quarter: 2016Q1

REPORT INFORMATION
  Report Type: Spontaneous
  Country: US (occurrence: US)
  Receive Date: 20160318
  Receipt Date: 20160318
  Transmission Date: 20160526
  Serious: Yes (Hospitalization, Other)
  Sender: FDA-Public Use
  Company Number: US-BRISTOL-MYERS SQUIBB COMPANY-BMS-2016-018772

PATIENT
  Age: 80 Year
  Sex: Female

DRUGS (1)
  1. SPRYCEL [Suspect]
     Active Substance: DASATINIB
     Indication: WHITE BLOOD CELL COUNT INCREASED
     Dosage: 50 MG, QD
     Route: 048
     Dates: start: 20160119

REACTIONS (2)
  - Vascular occlusion [Not Recovered/Not Resolved]
  - Stent placement [Unknown]

NARRATIVE: CASE EVENT DATE: 201601
